FAERS Safety Report 20628495 (Version 1)
Quarter: 2022Q1

REPORT INFORMATION
  Report Type: Spontaneous
  Country: GB (occurrence: DK)
  Receive Date: 20220323
  Receipt Date: 20220323
  Transmission Date: 20220423
  Serious: Yes (Other)
  Sender: FDA-Public Use
  Company Number: None

PATIENT

DRUGS (3)
  1. LATUDA [Suspect]
     Active Substance: LURASIDONE HYDROCHLORIDE
     Indication: Schizophrenia
     Dosage: VARIABLE, MAX DOSE IS 92.5 MG, QD
     Route: 048
     Dates: start: 20201130
  2. QUETIAPINE FUMARATE [Suspect]
     Active Substance: QUETIAPINE FUMARATE
     Indication: Schizophrenia
     Dosage: UNK, AS NECESSARY
     Route: 065
  3. SERTRALINE HYDROCHLORIDE [Concomitant]
     Active Substance: SERTRALINE HYDROCHLORIDE
     Indication: Depression
     Dosage: UNK
     Route: 065
     Dates: start: 20201030

REACTIONS (2)
  - Drug interaction [Unknown]
  - Hyperprolactinaemia [Recovered/Resolved]

NARRATIVE: CASE EVENT DATE: 20201201
